FAERS Safety Report 15082985 (Version 2)
Quarter: 2018Q3

REPORT INFORMATION
  Report Type: Spontaneous
  Country: US (occurrence: US)
  Receive Date: 20180628
  Receipt Date: 20180927
  Transmission Date: 20181010
  Serious: Yes (Hospitalization)
  Sender: FDA-Public Use
  Company Number: US-INDIVIOR LIMITED-INDV-110537-2018

PATIENT
  Sex: Male

DRUGS (5)
  1. SUBLOCADE [Suspect]
     Active Substance: BUPRENORPHINE
     Dosage: 300 MG, QMO  (FOURTH INJECTION)
     Route: 065
     Dates: start: 20180712
  2. FENTANYL. [Suspect]
     Active Substance: FENTANYL
     Indication: PRODUCT USED FOR UNKNOWN INDICATION
     Dosage: UNK
     Route: 065
     Dates: start: 2018
  3. SUBLOCADE [Suspect]
     Active Substance: BUPRENORPHINE
     Dosage: 300 MG, QMO  (SECOND INJECTION)
     Route: 065
     Dates: start: 2018, end: 2018
  4. SUBLOCADE [Suspect]
     Active Substance: BUPRENORPHINE
     Indication: DRUG DEPENDENCE
     Dosage: 300 MG, QMO (FIRST INJECTION)
     Route: 058
     Dates: start: 2018, end: 2018
  5. SUBLOCADE [Suspect]
     Active Substance: BUPRENORPHINE
     Dosage: 300 MG, QMO (THIRD INJECTION)
     Route: 065
     Dates: start: 2018, end: 2018

REACTIONS (2)
  - Drug abuse [Unknown]
  - Drug detoxification [Recovered/Resolved]

NARRATIVE: CASE EVENT DATE: 2018
